FAERS Safety Report 13417341 (Version 3)
Quarter: 2017Q2

REPORT INFORMATION
  Report Type: Spontaneous
  Country: US (occurrence: US)
  Receive Date: 20170406
  Receipt Date: 20170531
  Transmission Date: 20170830
  Serious: Yes (Other)
  Sender: FDA-Public Use
  Company Number: US-GLAXOSMITHKLINE-US2017GSK048217

PATIENT
  Sex: Female

DRUGS (2)
  1. LAMICTAL [Suspect]
     Active Substance: LAMOTRIGINE
     Indication: EPILEPSY
     Dosage: 100 MG, UNK
  2. LAMICTAL [Suspect]
     Active Substance: LAMOTRIGINE
     Dosage: 25 MG, UNK

REACTIONS (7)
  - Therapeutic response increased [Unknown]
  - Wrong technique in product usage process [Unknown]
  - Intentional product misuse [Unknown]
  - Loss of consciousness [Unknown]
  - Incorrect dose administered [Unknown]
  - Feeling jittery [Unknown]
  - Bradyphrenia [Unknown]
